FAERS Safety Report 20001042 (Version 1)
Quarter: 2021Q4

REPORT INFORMATION
  Report Type: Spontaneous
  Country: US (occurrence: US)
  Receive Date: 20211027
  Receipt Date: 20211027
  Transmission Date: 20220304
  Serious: Yes (Hospitalization)
  Sender: FDA-Public Use
  Company Number: None

PATIENT
  Age: 58 Year
  Sex: Male
  Weight: 95.85 kg

DRUGS (16)
  1. REGEN-COV [Suspect]
     Active Substance: CASIRIVIMAB\IMDEVIMAB
     Indication: COVID-19
     Dosage: ?          OTHER FREQUENCY:ONCE;
     Route: 042
     Dates: start: 20211022, end: 20211022
  2. DEXAMETHASONE [Concomitant]
     Active Substance: DEXAMETHASONE
     Dates: start: 20211023
  3. AZITHROMYCIN ANHYDROUS [Concomitant]
     Active Substance: AZITHROMYCIN ANHYDROUS
     Dates: start: 20211023, end: 20211023
  4. FUROSEMIDE [Concomitant]
     Active Substance: FUROSEMIDE
     Dates: start: 20210609
  5. REMDESIVIR [Concomitant]
     Active Substance: REMDESIVIR
     Dates: start: 20211023, end: 20211024
  6. AMOXICILLIN [Concomitant]
     Active Substance: AMOXICILLIN
     Dates: start: 20211023, end: 20211024
  7. ACETAMINOPHEN [Concomitant]
     Active Substance: ACETAMINOPHEN
     Dates: start: 20211023, end: 20211024
  8. ATORVASTATIN [Concomitant]
     Active Substance: ATORVASTATIN
     Dates: start: 20211023, end: 20211024
  9. METOPROLOL TARTRATE [Concomitant]
     Active Substance: METOPROLOL TARTRATE
     Dates: start: 20210609
  10. CLOPIDOGREL [Concomitant]
     Active Substance: CLOPIDOGREL BISULFATE
     Dates: start: 20210610
  11. SPIRONOLACTONE [Concomitant]
     Active Substance: SPIRONOLACTONE
     Dates: start: 20211012
  12. ALBUTEROL [Concomitant]
     Active Substance: ALBUTEROL
     Dates: start: 20210721
  13. LEVOFLOXACIN [Concomitant]
     Active Substance: LEVOFLOXACIN
     Dates: start: 20211023, end: 20211024
  14. METFORMIN [Concomitant]
     Active Substance: METFORMIN HYDROCHLORIDE
     Dates: start: 20210727, end: 20211012
  15. METOCLOPRAMIDE [Concomitant]
     Active Substance: METOCLOPRAMIDE
     Dates: start: 20211022, end: 20211024
  16. perflutren lipid microspheres 1.1 mg/mL 1.3 mL injection [Concomitant]
     Dates: start: 20211012, end: 20211024

REACTIONS (4)
  - Respiratory failure [None]
  - COVID-19 pneumonia [None]
  - Cardiac failure [None]
  - Lung infiltration [None]

NARRATIVE: CASE EVENT DATE: 20211023
